FAERS Safety Report 8262861-8 (Version None)
Quarter: 2012Q2

REPORT INFORMATION
  Report Type: 
  Country: None (occurrence: None)
  Receive Date: 20120405
  Receipt Date: 20120330
  Transmission Date: 20120825
  Serious: Yes (Hospitalization)
  Sender: FDA-Public Use
  Company Number: US-GLAXOSMITHKLINE-A0935887A

PATIENT
  Age: 60 Year
  Sex: Male
  Weight: 94.5 kg

DRUGS (3)
  1. ZYLOPRIM [Concomitant]
  2. GLUCOVANCE [Concomitant]
  3. AVANDIA [Suspect]
     Indication: DIABETES MELLITUS
     Dosage: 8MG PER DAY
     Route: 048
     Dates: start: 20010101, end: 20031230

REACTIONS (2)
  - CEREBROVASCULAR ACCIDENT [None]
  - NEUROPATHIC ARTHROPATHY [None]
